FAERS Safety Report 8363745-7 (Version None)
Quarter: 2012Q2

REPORT INFORMATION
  Report Type: 
  Country: None (occurrence: None)
  Receive Date: 20120514
  Receipt Date: 20120430
  Transmission Date: 20120825
  Serious: Yes (Other)
  Sender: FDA-Public Use
  Company Number: KAD201205-000294

PATIENT
  Age: 58 Year
  Sex: Male

DRUGS (7)
  1. DOCUSAT/SENNOSIDES [Concomitant]
  2. DOCUSATE [Concomitant]
  3. PSYLLIUM [Concomitant]
  4. VICTRELIS [Suspect]
     Indication: HEPATITIS C
     Dosage: 800 MG, EVERY 8 HOURS, ORAL
     Route: 048
     Dates: start: 20120322, end: 20120419
  5. PEGASYS [Suspect]
     Indication: PRODUCT USED FOR UNKNOWN INDICATION
     Dates: start: 20120224
  6. RIBAVIRIN [Suspect]
     Indication: PRODUCT USED FOR UNKNOWN INDICATION
     Dates: start: 20120224
  7. RANITIDINE [Concomitant]

REACTIONS (2)
  - PARAESTHESIA [None]
  - ANGIOEDEMA [None]
